FAERS Safety Report 6294423-6 (Version None)
Quarter: 2009Q3

REPORT INFORMATION
  Report Type: 
  Country: None (occurrence: None)
  Receive Date: 20090803
  Receipt Date: 20090720
  Transmission Date: 20100115
  Serious: Yes (Hospitalization, Other)
  Sender: FDA-Public Use
  Company Number: GB-CELGENEUS-167-20484-09071738

PATIENT
  Age: 32 Year
  Sex: Female

DRUGS (16)
  1. INNOHEP [Suspect]
     Route: 058
     Dates: start: 20010522, end: 20010611
  2. INNOHEP [Suspect]
     Route: 058
     Dates: start: 20010611, end: 20010704
  3. INNOHEP [Suspect]
     Route: 058
     Dates: start: 20010704, end: 20011105
  4. FLAGYL [Concomitant]
     Indication: VAGINAL INFECTION
     Route: 065
     Dates: start: 20010725, end: 20010730
  5. AIROMIR [Concomitant]
     Indication: ASTHMA
     Route: 065
  6. SALMETEROL [Concomitant]
     Indication: ASTHMA
     Route: 065
  7. FLIXOTIDE [Concomitant]
     Indication: ASTHMA
     Route: 065
  8. ACETAMINOPHEN AND CODEINE PHOSPHATE [Concomitant]
     Indication: BACK PAIN
     Route: 065
     Dates: start: 20010723, end: 20010820
  9. FELODIPINE [Concomitant]
     Route: 065
     Dates: start: 20010725, end: 20010725
  10. FELODIPINE [Concomitant]
     Route: 065
     Dates: start: 20010920, end: 20010920
  11. TEMAZEPAM [Concomitant]
     Indication: INSOMNIA
     Route: 065
     Dates: start: 20010808, end: 20010820
  12. PROSTAGLANDIN [Concomitant]
     Indication: LABOUR INDUCTION
     Route: 065
     Dates: start: 20010919, end: 20010919
  13. ENTONOX [Concomitant]
     Route: 065
     Dates: start: 20010920, end: 20010920
  14. SYNTOCINON [Concomitant]
     Indication: LABOUR INDUCTION
     Route: 065
     Dates: start: 20010920, end: 20010920
  15. MAXALON [Concomitant]
     Indication: ANTIEMETIC SUPPORTIVE CARE
     Route: 065
     Dates: start: 20010920, end: 20010920
  16. SYNTOMETRINE [Concomitant]
     Indication: LABOUR PAIN
     Route: 065
     Dates: start: 20010920, end: 20010920

REACTIONS (2)
  - DRUG EXPOSURE DURING PREGNANCY [None]
  - PREMATURE LABOUR [None]
